FAERS Safety Report 8838238 (Version 2)
Quarter: 2015Q3

REPORT INFORMATION
  Report Type: Report from Study
  Country: US (occurrence: US)
  Receive Date: 20121012
  Receipt Date: 20150818
  Transmission Date: 20151125
  Serious: Yes (Other)
  Sender: FDA-Public Use
  Company Number: US-ROCHE-1139833

PATIENT
  Age: 16 Year
  Sex: Female
  Weight: 49.8 kg

DRUGS (2)
  1. PROTROPIN [Suspect]
     Active Substance: SOMATREM
     Indication: TURNER^S SYNDROME
     Dosage: IN 0.5ML VOLUME
     Route: 058
     Dates: start: 19931006
  2. SYNTHROID [Concomitant]
     Active Substance: LEVOTHYROXINE SODIUM
     Route: 065

REACTIONS (1)
  - Hypothyroidism [Unknown]

NARRATIVE: CASE EVENT DATE: 20001121
